FAERS Safety Report 7747623-X (Version None)
Quarter: 2011Q3

REPORT INFORMATION
  Report Type: 
  Country: None (occurrence: None)
  Receive Date: 20110913
  Receipt Date: 20110905
  Transmission Date: 20111222
  Serious: Yes (Other)
  Sender: FDA-Public Use
  Company Number: BR-BAYER-2011-081645

PATIENT
  Sex: Female

DRUGS (1)
  1. AVELOX [Suspect]
     Route: 048

REACTIONS (4)
  - FEELING ABNORMAL [None]
  - ARRHYTHMIA [None]
  - MYOCARDIAL INFARCTION [None]
  - PALPITATIONS [None]
